FAERS Safety Report 18855856 (Version 1)
Quarter: 2021Q1

REPORT INFORMATION
  Report Type: Report from Study
  Country: DE (occurrence: DE)
  Receive Date: 20210206
  Receipt Date: 20210206
  Transmission Date: 20210420
  Serious: Yes (Death, Hospitalization, Other)
  Sender: FDA-Public Use
  Company Number: DE-BRISTOL-MYERS SQUIBB COMPANY-BMS-2019-036481

PATIENT
  Age: 22 Year
  Sex: Male

DRUGS (3)
  1. IPILIMUMAB [Suspect]
     Active Substance: IPILIMUMAB
     Indication: MALIGNANT MELANOMA
     Dosage: 210 MILLIGRAM, Q3WK
     Route: 042
     Dates: start: 20190401, end: 20190424
  2. NIVOLUMAB [Suspect]
     Active Substance: NIVOLUMAB
     Dosage: 480 MILLIGRAM, Q4WK
     Route: 042
     Dates: start: 20190401, end: 20190619
  3. NIVOLUMAB [Suspect]
     Active Substance: NIVOLUMAB
     Indication: MALIGNANT MELANOMA
     Dosage: 70 MILLIGRAM, Q3WK
     Route: 042
     Dates: start: 20190401, end: 20190424

REACTIONS (7)
  - Malignant neoplasm progression [Fatal]
  - Anaemia [Not Recovered/Not Resolved]
  - Torsade de pointes [Unknown]
  - Seizure [Not Recovered/Not Resolved]
  - Fatigue [Not Recovered/Not Resolved]
  - Near drowning [Unknown]
  - Metastases to central nervous system [Unknown]

NARRATIVE: CASE EVENT DATE: 2019
